FAERS Safety Report 4742432-8 (Version None)
Quarter: 2005Q3

REPORT INFORMATION
  Report Type: 
  Country: None (occurrence: None)
  Receive Date: 20050808
  Receipt Date: 20050726
  Transmission Date: 20060218
  Serious: Yes (Other)
  Sender: FDA-Public Use
  Company Number: 2005106598

PATIENT
  Sex: Female

DRUGS (5)
  1. CELEBREX [Suspect]
     Indication: OSTEOARTHRITIS
  2. BEXTRA [Suspect]
     Indication: OSTEOARTHRITIS
     Dosage: 20 MG (20 MG, 1 IN 1 D)
  3. NEURONTIN [Suspect]
     Indication: OSTEOARTHRITIS
     Dosage: 600 MG (300 MG, 2 IN 1 D)
  4. SYNTHROID [Concomitant]
  5. LIPITOR [Concomitant]

REACTIONS (29)
  - BACK DISORDER [None]
  - BLOOD PRESSURE ABNORMAL [None]
  - BODY HEIGHT DECREASED [None]
  - BONE DISORDER [None]
  - CARTILAGE INJURY [None]
  - CHONDROPATHY [None]
  - COMPRESSION FRACTURE [None]
  - CONDITION AGGRAVATED [None]
  - CONTUSION [None]
  - DRUG INEFFECTIVE [None]
  - DRUG INTOLERANCE [None]
  - FALL [None]
  - FATIGUE [None]
  - FIBROMYALGIA [None]
  - GASTRIC DISORDER [None]
  - KIDNEY INFECTION [None]
  - LACERATION [None]
  - OSTEOARTHRITIS [None]
  - OSTEOPOROSIS [None]
  - PAIN [None]
  - PERFORMANCE STATUS DECREASED [None]
  - PULSE ABSENT [None]
  - RIB FRACTURE [None]
  - STRESS [None]
  - THINKING ABNORMAL [None]
  - TOOTH DISORDER [None]
  - WALKING AID USER [None]
  - WEIGHT DECREASED [None]
  - WEIGHT INCREASED [None]
